FAERS Safety Report 7112946-4 (Version None)
Quarter: 2010Q4

REPORT INFORMATION
  Report Type: 
  Country: None (occurrence: None)
  Receive Date: 20101119
  Receipt Date: 20101103
  Transmission Date: 20110411
  Serious: No
  Sender: FDA-Public Use
  Company Number: US-BAYER-201041132NA

PATIENT
  Age: 37 Year
  Sex: Female

DRUGS (2)
  1. MIRENA [Suspect]
     Indication: CONTRACEPTION
     Dosage: FREQUENCY: CONTINUOUS
     Route: 015
     Dates: start: 20100101
  2. MIRENA [Suspect]
     Dosage: FREQUENCY: CONTINUOUS
     Route: 015
     Dates: start: 20070101, end: 20100101

REACTIONS (4)
  - DEVICE EXPULSION [None]
  - MENSTRUATION DELAYED [None]
  - METRORRHAGIA [None]
  - SMEAR CERVIX ABNORMAL [None]
